FAERS Safety Report 19465338 (Version 2)
Quarter: 2021Q3

REPORT INFORMATION
  Report Type: Spontaneous
  Country: AT (occurrence: AT)
  Receive Date: 20210624
  Receipt Date: 20210707
  Transmission Date: 20211014
  Serious: Yes (Hospitalization, Other)
  Sender: FDA-Public Use
  Company Number: AT-B.I. PHARMACEUTICALS,INC./RIDGEFIELD-2021-BI-111234

PATIENT
  Age: 69 Year
  Sex: Female

DRUGS (2)
  1. PRADAXA [Suspect]
     Active Substance: DABIGATRAN ETEXILATE MESYLATE
     Indication: ATRIAL FIBRILLATION
     Dosage: BID; DABIGATRAN WAS PAUSED 48 HOURS PRIOR TO THE SURGERY
  2. PRADAXA [Suspect]
     Active Substance: DABIGATRAN ETEXILATE MESYLATE
     Indication: CHRONIC KIDNEY DISEASE
     Dosage: PRADAXA WAS RE?STARTED ON THE 2. POST?OPERATIVE DAY.

REACTIONS (8)
  - Hypovolaemic shock [Unknown]
  - Groin pain [Unknown]
  - Arterial haemorrhage [Unknown]
  - Adrenalectomy [Unknown]
  - Haemoglobin decreased [Unknown]
  - Haematoma [Unknown]
  - Swelling [Unknown]
  - Complication associated with device [Unknown]
